FAERS Safety Report 14205717 (Version 1)
Quarter: 2017Q4

REPORT INFORMATION
  Report Type: Spontaneous
  Country: US (occurrence: US)
  Receive Date: 20171120
  Receipt Date: 20171120
  Transmission Date: 20180321
  Serious: No
  Sender: FDA-Public Use
  Company Number: US-ARBOR PHARMACEUTICALS, LLC-US-2017ARB000854

PATIENT
  Age: 48 Year
  Sex: Male

DRUGS (3)
  1. GLIADEL [Suspect]
     Active Substance: CARMUSTINE
     Indication: GLIOBLASTOMA
     Dosage: 1 WAFER; 7.7MG WAFER, SINGLE
     Dates: start: 20170908, end: 20170908
  2. GLIADEL [Suspect]
     Active Substance: CARMUSTINE
     Dosage: 3 WAFERS; 7.7MG WAFERS, SINGLE
     Dates: start: 20170908, end: 20170908
  3. GLIADEL [Suspect]
     Active Substance: CARMUSTINE
     Dosage: 1 WAFERS; 7.7MG WAFER, SINGLE
     Dates: start: 20170908, end: 20170908

REACTIONS (3)
  - Prescribed underdose [Unknown]
  - Expired product administered [Unknown]
  - Headache [Not Recovered/Not Resolved]

NARRATIVE: CASE EVENT DATE: 201709
